FAERS Safety Report 7206068-1 (Version None)
Quarter: 2011Q1

REPORT INFORMATION
  Report Type: 
  Country: None (occurrence: None)
  Receive Date: 20110103
  Receipt Date: 20101220
  Transmission Date: 20110831
  Serious: Yes (Hospitalization)
  Sender: FDA-Public Use
  Company Number: DE-RANBAXY-2010RR-37986

PATIENT
  Age: 60 Year
  Sex: Male
  Weight: 80 kg

DRUGS (6)
  1. BELOC-ZOK [Concomitant]
     Indication: HYPERTENSION
     Dosage: 47.5 MG, QD
     Route: 048
     Dates: start: 20050101
  2. ULTRAVIST 300 [Suspect]
     Indication: ANGIOGRAM
     Dosage: 250 ML, UNK
     Route: 042
     Dates: start: 20100713, end: 20100713
  3. METFORMIN HCL [Concomitant]
     Indication: TYPE 2 DIABETES MELLITUS
     Dosage: 500 MG, TID
     Route: 048
     Dates: start: 20060101, end: 20100718
  4. QUILONUM RETARD [Suspect]
     Indication: SCHIZOAFFECTIVE DISORDER
     Dosage: 450 MG, QD
     Route: 048
     Dates: start: 20080101, end: 20100718
  5. RAMIPRIL [Suspect]
     Indication: HYPERTENSION
     Dosage: 2.5 MG, BID
     Route: 048
     Dates: start: 20050101
  6. LITHIUM [Suspect]
     Indication: SCHIZOAFFECTIVE DISORDER
     Dosage: 295 MG, QD
     Route: 048
     Dates: start: 20080101, end: 20100718

REACTIONS (2)
  - RENAL FAILURE ACUTE [None]
  - DRUG INTERACTION [None]
